FAERS Safety Report 12706172 (Version 7)
Quarter: 2018Q3

REPORT INFORMATION
  Report Type: Spontaneous
  Country: US (occurrence: US)
  Receive Date: 20160901
  Receipt Date: 20180821
  Transmission Date: 20181010
  Serious: Yes (Other)
  Sender: FDA-Public Use
  Company Number: US-JAZZ-2016-US-008296

PATIENT
  Sex: Male

DRUGS (42)
  1. XYREM [Suspect]
     Active Substance: SODIUM OXYBATE
     Indication: NARCOLEPSY
     Dosage: 2.25G, BID
     Route: 048
     Dates: start: 201005, end: 201010
  2. CODEINE SULFATE. [Concomitant]
     Active Substance: CODEINE SULFATE
  3. MECLIZINE HCL [Concomitant]
     Active Substance: MECLIZINE HYDROCHLORIDE
  4. TRIAMCINOLONE [Concomitant]
     Active Substance: TRIAMCINOLONE
  5. PROBIOTICA [Concomitant]
     Active Substance: PROBIOTICS NOS
  6. XYREM [Suspect]
     Active Substance: SODIUM OXYBATE
     Indication: CATAPLEXY
     Dosage: DOSE ADJUSTMENTS
     Route: 048
     Dates: start: 201010, end: 201312
  7. XYREM [Suspect]
     Active Substance: SODIUM OXYBATE
     Dosage: 3 G, BID
     Route: 048
     Dates: start: 2017
  8. GLICLAZIDE [Concomitant]
     Active Substance: GLICLAZIDE
  9. DIOVAN HCT [Concomitant]
     Active Substance: HYDROCHLOROTHIAZIDE\VALSARTAN
  10. FLOMAXTRA [Concomitant]
     Active Substance: TAMSULOSIN HYDROCHLORIDE
  11. FISH OIL W/TOCOPHERYL ACETATE [Concomitant]
  12. KEPPRA [Concomitant]
     Active Substance: LEVETIRACETAM
  13. URIBEL [Concomitant]
     Active Substance: HYOSCYAMINE SULFATE\METHENAMINE\METHYLENE BLUE\PHENYL SALICYLATE\SODIUM PHOSPHATE, MONOBASIC, MONOHYDRATE
  14. DEXTROMETHORPHAN [Concomitant]
     Active Substance: DEXTROMETHORPHAN
  15. FLUTICASONE PROPIONATE. [Concomitant]
     Active Substance: FLUTICASONE PROPIONATE
  16. GABAPENTIN. [Concomitant]
     Active Substance: GABAPENTIN
  17. MUCINEX [Concomitant]
     Active Substance: GUAIFENESIN
  18. POTASSIUM CITRATE. [Concomitant]
     Active Substance: POTASSIUM CITRATE
  19. ROPINIROLE. [Concomitant]
     Active Substance: ROPINIROLE
  20. VICKS ACTION [Concomitant]
  21. FLUTICASONE. [Concomitant]
     Active Substance: FLUTICASONE
  22. TAMBOCOR [Concomitant]
     Active Substance: FLECAINIDE ACETATE
  23. FLECAINIDE ACETATE. [Concomitant]
     Active Substance: FLECAINIDE ACETATE
  24. XYREM [Suspect]
     Active Substance: SODIUM OXYBATE
     Dosage: 3 G, BID
     Route: 048
     Dates: start: 201312, end: 2016
  25. VITAMIN B COMPLEX [Concomitant]
     Active Substance: CYANOCOBALAMIN\DEXPANTHENOL\NIACINAMIDE\PYRIDOXINE HYDROCHLORIDE\RIBOFLAVIN 5^-PHOSPHATE SODIUM\THIAMINE HYDROCHLORIDE\VITAMIN B COMPLEX
  26. VOLTAREN COLIRIO [Concomitant]
     Active Substance: DICLOFENAC SODIUM
  27. CLINDAMYCIN HYDROCHLORIDE. [Concomitant]
     Active Substance: CLINDAMYCIN HYDROCHLORIDE
  28. MODAFINIL. [Concomitant]
     Active Substance: MODAFINIL
  29. VITAMIN D [Concomitant]
     Active Substance: CHOLECALCIFEROL
  30. LEVOFLOXACIN. [Concomitant]
     Active Substance: LEVOFLOXACIN
  31. PREDNISONE. [Concomitant]
     Active Substance: PREDNISONE
  32. SINGULAIR [Concomitant]
     Active Substance: MONTELUKAST SODIUM
  33. VITAMIN C ACID [Concomitant]
     Active Substance: ASCORBIC ACID
  34. HYDROCHLOROTHIAZIDE. [Concomitant]
     Active Substance: HYDROCHLOROTHIAZIDE
  35. LEXAPRO [Concomitant]
     Active Substance: ESCITALOPRAM OXALATE
  36. TOVIAZ [Concomitant]
     Active Substance: FESOTERODINE FUMARATE
  37. DEXAMETHASONE SODIUM PHOSPHATE. [Concomitant]
     Active Substance: DEXAMETHASONE SODIUM PHOSPHATE
  38. XYREM [Suspect]
     Active Substance: SODIUM OXYBATE
     Dosage: 2.25 G, UNK
     Route: 048
     Dates: start: 2017, end: 2017
  39. BENAZEPRIL HCL [Concomitant]
     Active Substance: BENAZEPRIL HYDROCHLORIDE
  40. PROAIR HFA [Concomitant]
     Active Substance: ALBUTEROL SULFATE
  41. TOPROL XL [Concomitant]
     Active Substance: METOPROLOL SUCCINATE
  42. METHYLPREDNISOLONE. [Concomitant]
     Active Substance: METHYLPREDNISOLONE

REACTIONS (5)
  - Fatigue [Unknown]
  - Asthma [Not Recovered/Not Resolved]
  - Bronchitis [Unknown]
  - Pneumonia [Recovered/Resolved]
  - Asthenia [Unknown]
